FAERS Safety Report 9966531 (Version 2)
Quarter: 2014Q1

REPORT INFORMATION
  Report Type: Report from Study
  Country: US (occurrence: US)
  Receive Date: 20140305
  Receipt Date: 20140305
  Transmission Date: 20141002
  Serious: No
  Sender: FDA-Public Use
  Company Number: US-ABBVIE-12P-163-0986082-00

PATIENT
  Age: 42 Year
  Sex: Female

DRUGS (7)
  1. HUMIRA [Suspect]
     Indication: CROHN^S DISEASE
     Route: 058
     Dates: start: 201207
  2. DICYCLOMINE [Concomitant]
     Indication: IRRITABLE BOWEL SYNDROME
     Dosage: 1 A DAY AS NEEDED
  3. DICYCLOMINE [Concomitant]
     Indication: GASTROINTESTINAL DISORDER
  4. TRAMADOL [Concomitant]
     Indication: IRRITABLE BOWEL SYNDROME
     Dosage: 2 A DAY AS NEEDED
  5. TRAMADOL [Concomitant]
     Indication: GASTROINTESTINAL DISORDER
  6. LORAZEPAM [Concomitant]
     Indication: ANXIETY
     Dosage: 3 A DAY AS NEEDED
  7. DOXYCYCLINE [Concomitant]
     Indication: ACNE

REACTIONS (5)
  - Vertigo [Recovered/Resolved]
  - Oropharyngeal pain [Not Recovered/Not Resolved]
  - Cough [Not Recovered/Not Resolved]
  - Injection site pain [Recovered/Resolved]
  - Cyst [Recovered/Resolved]
